FAERS Safety Report 6729915-6 (Version None)
Quarter: 2010Q2

REPORT INFORMATION
  Report Type: 
  Country: None (occurrence: None)
  Receive Date: 20100518
  Receipt Date: 20100505
  Transmission Date: 20101027
  Serious: Yes (Other)
  Sender: FDA-Public Use
  Company Number: PHHY2010US18692

PATIENT
  Sex: Male
  Weight: 47.619 kg

DRUGS (10)
  1. EXJADE [Suspect]
     Indication: SICKLE CELL ANAEMIA
     Dosage: 1250 MG, QD
     Route: 048
     Dates: start: 20080509, end: 20100224
  2. DIGOXIN [Concomitant]
  3. HYDROCHLOROTHIAZIDE [Concomitant]
     Dosage: 25 MG, UNK
  4. METOPROLOL TARTRATE [Concomitant]
     Dosage: 50 MG, UNK
  5. MORPHINE SULFATE [Concomitant]
     Dosage: 30 MG, UNK
  6. OMEPRAZOLE [Concomitant]
     Dosage: 20 MG, UNK
  7. SANTYL [Concomitant]
  8. SULFAMETHOXAZOLE AND TRIMETHOPRIM [Concomitant]
  9. TRIAMCINOLONE [Concomitant]
     Dosage: UNK
  10. HYDROMORPHONE HCL [Concomitant]
     Dosage: 4 MG, UNK

REACTIONS (11)
  - ARTHRALGIA [None]
  - BLOOD PRESSURE DECREASED [None]
  - CENTRAL VENOUS CATHETER REMOVAL [None]
  - CENTRAL VENOUS CATHETERISATION [None]
  - GAIT DISTURBANCE [None]
  - JOINT FLUID DRAINAGE [None]
  - OCULAR ICTERUS [None]
  - RENAL FAILURE [None]
  - RENAL IMPAIRMENT [None]
  - SEROMA [None]
  - WALKING AID USER [None]
